FAERS Safety Report 9493366 (Version 2)
Quarter: 2013Q3

REPORT INFORMATION
  Report Type: Spontaneous
  Country: US (occurrence: US)
  Receive Date: 20130902
  Receipt Date: 20130905
  Transmission Date: 20140515
  Serious: Yes (Congenital Anomaly, Other)
  Sender: FDA-Public Use
  Company Number: US-PFIZER INC-2013251709

PATIENT
  Sex: 0

DRUGS (10)
  1. IBUPROFEN [Suspect]
     Route: 064
  2. LEVOFLOXACIN [Suspect]
     Route: 064
  3. ETANERCEPT [Suspect]
     Route: 064
  4. PREDNISONE [Suspect]
     Route: 064
  5. HYDROCHLOROTHIAZIDE [Suspect]
     Route: 064
  6. LEFLUNOMIDE [Suspect]
     Route: 064
  7. CARISOPRODOL [Suspect]
     Route: 064
  8. CYCLOBENZAPRINE [Suspect]
     Route: 064
  9. PROPOXYPHENE [Suspect]
     Route: 064
  10. DEMEROL [Suspect]
     Route: 064

REACTIONS (3)
  - Foetal exposure during pregnancy [Unknown]
  - Congenital cystic kidney disease [Unknown]
  - Single functional kidney [Unknown]
